FAERS Safety Report 11650908 (Version 1)
Quarter: 2015Q4

REPORT INFORMATION
  Report Type: Spontaneous
  Country: JP (occurrence: JP)
  Receive Date: 20151021
  Receipt Date: 20151021
  Transmission Date: 20160304
  Serious: Yes (Death, Hospitalization, Other)
  Sender: FDA-Public Use
  Company Number: JP-BAXTER-2015BAX037934

PATIENT
  Age: 90 Year
  Sex: Male

DRUGS (14)
  1. CELLTOP 25 MG, CAPSULE [Suspect]
     Active Substance: ETOPOSIDE
     Indication: ERYTHEMA
     Dosage: LOW DOSE
     Route: 048
     Dates: start: 2009, end: 2009
  2. ENDOXAN 1G [Suspect]
     Active Substance: CYCLOPHOSPHAMIDE
     Dosage: INCREASED TO 50 PERCENT OF NORMAL DOSE 350 MG
     Route: 065
  3. ENDOXAN 1G [Suspect]
     Active Substance: CYCLOPHOSPHAMIDE
     Dosage: INCREASED TO 60 PERCENT OF NORMAL DOSE 350 MG
     Route: 065
  4. PIRARUBICIN [Suspect]
     Active Substance: PIRARUBICIN
     Indication: MYCOSIS FUNGOIDES
     Dosage: 30 PERCENT OF THE NORMAL DOSE OF 25 MG
     Route: 065
     Dates: start: 200809
  5. PIRARUBICIN [Suspect]
     Active Substance: PIRARUBICIN
     Dosage: INCRESED TO 60 PERCENT OF NORMAL DOSE 25 MG
     Route: 065
  6. ONCOVIN [Suspect]
     Active Substance: VINCRISTINE SULFATE
     Dosage: INCREASED TO 50 PERCENT OF NORMAL DOSE 0.6 MG
     Route: 065
  7. PREDNISOLONE. [Suspect]
     Active Substance: PREDNISOLONE
     Indication: MYCOSIS FUNGOIDES
     Dosage: 30 PERCENT OF THE NORMAL DOSE OF 30 MG
     Route: 065
     Dates: start: 200809
  8. PREDNISOLONE. [Suspect]
     Active Substance: PREDNISOLONE
     Dosage: INCREASED TO 50 PERCENT OF NORMAL DOSE 30 MG
     Route: 065
  9. PREDNISOLONE. [Suspect]
     Active Substance: PREDNISOLONE
     Dosage: INCRESED TO 60 PERCENT OF NORMAL DOSE 30 MG
     Route: 065
  10. ENDOXAN 1G [Suspect]
     Active Substance: CYCLOPHOSPHAMIDE
     Indication: MYCOSIS FUNGOIDES
     Dosage: 30 PERCENT OF NORMAL DOSE OF 350 MG
     Route: 065
     Dates: start: 200809
  11. ONCOVIN [Suspect]
     Active Substance: VINCRISTINE SULFATE
     Indication: MYCOSIS FUNGOIDES
     Dosage: 30 PERCENT OF THE NORMAL DOSE OF 0.6 MG
     Route: 065
     Dates: start: 200809
  12. CELLTOP 25 MG, CAPSULE [Suspect]
     Active Substance: ETOPOSIDE
     Indication: OFF LABEL USE
  13. ONCOVIN [Suspect]
     Active Substance: VINCRISTINE SULFATE
     Dosage: INCRESED TO 60 PERCENT OF NORMAL DOSE 0.6 MG
     Route: 065
  14. PIRARUBICIN [Suspect]
     Active Substance: PIRARUBICIN
     Dosage: INCREASED TO 50 PERCENT OF NORMAL DOSE 25 MG
     Route: 065

REACTIONS (8)
  - Pneumonia bacterial [Unknown]
  - Therapy responder [Unknown]
  - Pseudomonas infection [Recovered/Resolved]
  - Cardiac arrest [Unknown]
  - Erythema [Unknown]
  - Staphylococcal infection [Recovered/Resolved]
  - Disease complication [Fatal]
  - Cardiac disorder [Fatal]

NARRATIVE: CASE EVENT DATE: 2008
